FAERS Safety Report 9107197 (Version 1)
Quarter: 2013Q1

REPORT INFORMATION
  Report Type: Spontaneous
  Country: DE (occurrence: DE)
  Receive Date: 20130221
  Receipt Date: 20130221
  Transmission Date: 20140127
  Serious: Yes (Hospitalization)
  Sender: FDA-Public Use
  Company Number: DE-SANOFI-AVENTIS-2013SA015748

PATIENT
  Age: 71 Year
  Sex: Female
  Weight: 59 kg

DRUGS (9)
  1. MULTAQ [Suspect]
     Indication: ATRIAL TACHYCARDIA
     Route: 048
     Dates: start: 20130207, end: 20130213
  2. PHENPROCOUMON [Concomitant]
     Indication: ATRIAL TACHYCARDIA
     Route: 048
  3. ISCOVER [Concomitant]
     Indication: INTRACARDIAC THROMBUS
     Route: 048
  4. DIGITOXIN [Concomitant]
     Indication: ATRIAL TACHYCARDIA
     Route: 048
  5. RAMIPRIL [Concomitant]
     Indication: HYPERTENSION
     Route: 048
  6. TORASEMIDE [Concomitant]
     Indication: HYPERTENSION
     Route: 048
  7. PANTOZOL [Concomitant]
     Indication: PRODUCT USED FOR UNKNOWN INDICATION
     Route: 048
  8. L-THYROXIN [Concomitant]
     Indication: PRODUCT USED FOR UNKNOWN INDICATION
     Route: 048
  9. KREON [Concomitant]
     Indication: PRODUCT USED FOR UNKNOWN INDICATION
     Dosage: DOSE:40000 UNIT(S)
     Route: 048

REACTIONS (3)
  - Electrocardiogram R on T phenomenon [Recovering/Resolving]
  - Electrocardiogram abnormal [Recovering/Resolving]
  - Electrocardiogram QT prolonged [Recovering/Resolving]
